FAERS Safety Report 12559387 (Version 2)
Quarter: 2016Q3

REPORT INFORMATION
  Report Type: Spontaneous
  Country: DE (occurrence: DE)
  Receive Date: 20160715
  Receipt Date: 20160906
  Transmission Date: 20161109
  Serious: Yes (Other)
  Sender: FDA-Public Use
  Company Number: DE-AMGEN-DEUSP2016089491

PATIENT
  Age: 83 Year
  Sex: Female

DRUGS (3)
  1. ALENDRONIC ACID [Concomitant]
     Active Substance: ALENDRONIC ACID
     Dosage: UNK
  2. PROLIA [Suspect]
     Active Substance: DENOSUMAB
     Indication: PRODUCT USED FOR UNKNOWN INDICATION
     Dosage: 60 MG, UNK
     Route: 065
  3. PROTELOS [Concomitant]
     Active Substance: STRONTIUM RANELATE
     Dosage: UNK

REACTIONS (4)
  - Alopecia [Unknown]
  - Pruritus generalised [Unknown]
  - Gastrointestinal haemorrhage [Unknown]
  - Tooth disorder [Unknown]

NARRATIVE: CASE EVENT DATE: 201603
